FAERS Safety Report 7008921-0 (Version None)
Quarter: 2010Q3

REPORT INFORMATION
  Report Type: 
  Country: None (occurrence: None)
  Receive Date: 20100923
  Receipt Date: 20100913
  Transmission Date: 20110219
  Serious: Yes (Death, Hospitalization)
  Sender: FDA-Public Use
  Company Number: US-JNJFOC-20100801838

PATIENT
  Sex: Male
  Weight: 75.75 kg

DRUGS (6)
  1. REMICADE [Suspect]
     Indication: CROHN'S DISEASE
     Dosage: 8 INFUSIONS PRIOR TO BASELINE
     Route: 042
  2. REMICADE [Suspect]
     Dosage: 57 INFUSIONS
     Route: 042
  3. REMICADE [Suspect]
     Dosage: 5 INFUSIONS
     Route: 042
  4. ANTIDEPRESSANTS [Concomitant]
     Indication: CROHN'S DISEASE
  5. BUDESONIDE [Concomitant]
     Indication: CROHN'S DISEASE
  6. NARCOTIC ANALGESICS, NOS [Concomitant]
     Indication: CROHN'S DISEASE

REACTIONS (7)
  - BLOOD URINE PRESENT [None]
  - CARDIAC ARREST [None]
  - CEREBROVASCULAR ACCIDENT [None]
  - CONVULSION [None]
  - FALL [None]
  - HAEMATOCHEZIA [None]
  - INTERNATIONAL NORMALISED RATIO INCREASED [None]
